FAERS Safety Report 24571821 (Version 1)
Quarter: 2024Q4

REPORT INFORMATION
  Report Type: Spontaneous
  Country: US (occurrence: None)
  Receive Date: 20241031
  Receipt Date: 20241031
  Transmission Date: 20250114
  Serious: Yes (Hospitalization)
  Sender: Public
  Company Number: None

PATIENT
  Age: 70 Year
  Sex: Male

DRUGS (2)
  1. TACROLIMUS [Suspect]
     Active Substance: TACROLIMUS
     Indication: Renal transplant
     Dosage: FREQUENCY: 2 IN AM AND 1 IN PM
  2. METOPROLOL [Suspect]
     Active Substance: METOPROLOL

REACTIONS (2)
  - Cerebrovascular accident [None]
  - Renal impairment [None]
